FAERS Safety Report 5365687-8 (Version None)
Quarter: 2007Q2

REPORT INFORMATION
  Report Type: 
  Country: None (occurrence: None)
  Receive Date: 20070621
  Receipt Date: 20070612
  Transmission Date: 20071010
  Serious: Yes (Hospitalization)
  Sender: FDA-Public Use
  Company Number: NL-AMGEN-US218592

PATIENT
  Sex: Male

DRUGS (2)
  1. ENBREL [Suspect]
     Indication: PSORIASIS
     Dates: end: 20050623
  2. ENBREL [Suspect]
     Dates: start: 20050624, end: 20060110

REACTIONS (1)
  - HEPATIC FAILURE [None]
